FAERS Safety Report 5853059-9 (Version None)
Quarter: 2008Q3

REPORT INFORMATION
  Report Type: 
  Country: None (occurrence: None)
  Receive Date: 20080814
  Receipt Date: 20080603
  Transmission Date: 20090109
  Serious: No
  Sender: FDA-Public Use
  Company Number: WAES 0806USA00677

PATIENT
  Age: 39 Year
  Sex: Male

DRUGS (8)
  1. ISENTRESS [Suspect]
     Indication: HIV INFECTION
     Dosage: 400 MG/BID/PO
     Route: 048
     Dates: start: 20080119, end: 20080523
  2. CYMBALTA [Concomitant]
  3. SEROQUEL [Concomitant]
  4. TRUVADA [Concomitant]
  5. TYLENOL (CAPLET) [Concomitant]
  6. [THERAPY UNSPECIFIED] [Concomitant]
  7. ACYCLOVIR [Concomitant]
  8. ASPIRIN [Concomitant]

REACTIONS (4)
  - BLOOD CREATININE INCREASED [None]
  - GLOMERULAR FILTRATION RATE INCREASED [None]
  - HYPERTENSION [None]
  - OEDEMA PERIPHERAL [None]
